FAERS Safety Report 5491058-X (Version None)
Quarter: 2007Q4

REPORT INFORMATION
  Report Type: 
  Country: None (occurrence: None)
  Receive Date: 20071019
  Receipt Date: 20071009
  Transmission Date: 20080405
  Serious: Yes (Other)
  Sender: FDA-Public Use
  Company Number: MX-PFIZER INC-2007084920

PATIENT
  Sex: Male
  Weight: 93 kg

DRUGS (6)
  1. INSPRA [Suspect]
     Indication: DYSPNOEA
     Route: 048
  2. GLYBURIDE [Concomitant]
     Route: 048
  3. JANUVIA [Concomitant]
     Dosage: DAILY DOSE:100MG-FREQ:DAILY
     Route: 048
  4. IMDUR [Concomitant]
     Dosage: DAILY DOSE:60MG-FREQ:DAILY
     Route: 048
  5. COZAAR [Concomitant]
     Dosage: DAILY DOSE:50MG-FREQ:DAILY
     Route: 048
  6. DIACEREIN [Concomitant]
     Dosage: DAILY DOSE:50MG-FREQ:DAILY
     Route: 048

REACTIONS (1)
  - HYPERGLYCAEMIA [None]
